FAERS Safety Report 20803270 (Version 1)
Quarter: 2022Q2

REPORT INFORMATION
  Report Type: Spontaneous
  Country: US (occurrence: US)
  Receive Date: 20220509
  Receipt Date: 20220509
  Transmission Date: 20220721
  Serious: No
  Sender: FDA-Public Use
  Company Number: US-GLAXOSMITHKLINE-USCH2022AMR016026

PATIENT
  Sex: Female

DRUGS (1)
  1. ADVIL [Suspect]
     Active Substance: IBUPROFEN
     Indication: Musculoskeletal chest pain
     Dosage: EVERY 12 HOURS
     Dates: start: 20220502

REACTIONS (2)
  - Arthralgia [Unknown]
  - Drug ineffective [Unknown]
